FAERS Safety Report 13864935 (Version 2)
Quarter: 2017Q3

REPORT INFORMATION
  Report Type: Spontaneous
  Country: BR (occurrence: BR)
  Receive Date: 20170814
  Receipt Date: 20170816
  Transmission Date: 20171127
  Serious: Yes (Other)
  Sender: FDA-Public Use
  Company Number: BR-PFIZER INC-2017346945

PATIENT
  Age: 40 Year
  Sex: Male

DRUGS (13)
  1. LEVOMEPROMAZINE [Concomitant]
     Active Substance: LEVOMEPROMAZINE
     Dosage: 4 GTT, 1X/DAY
  2. MEROPENEM. [Concomitant]
     Active Substance: MEROPENEM
     Dosage: 1 MG, 8/8H
     Dates: start: 20170710
  3. TEICOPLANIN [Concomitant]
     Active Substance: TEICOPLANIN
     Dosage: 400 MG, 1X/DAY
     Dates: start: 20170626, end: 20170709
  4. CEFTRIAXONE. [Concomitant]
     Active Substance: CEFTRIAXONE
     Dosage: 1 G, 12/12H
     Dates: start: 20170615, end: 20170625
  5. MORPHINE [Concomitant]
     Active Substance: MORPHINE
     Dosage: 3 MG, EVERY 4 HOURS IF STRONG PAIN
  6. HEPARINA /00027701/ [Suspect]
     Active Substance: HEPARIN SODIUM
     Dosage: 500 IU, 8/8H
  7. FLUCONAZOLE. [Concomitant]
     Active Substance: FLUCONAZOLE
     Dosage: 200 MG, 12/12H
     Dates: start: 20170705
  8. LINEZOLID. [Suspect]
     Active Substance: LINEZOLID
     Indication: SEPSIS
     Dosage: 600 MG, 12/12H
     Route: 042
     Dates: start: 20170710, end: 20170726
  9. CLINDAMYCIN. [Concomitant]
     Active Substance: CLINDAMYCIN
     Dosage: 600 MG, 6/6H
     Dates: start: 20170615, end: 20170625
  10. DIPIRONA [Concomitant]
     Active Substance: METAMIZOLE
     Dosage: 2 G, 6/6H
     Dates: start: 20170615
  11. AMIKACIN [Concomitant]
     Active Substance: AMIKACIN
     Dosage: 500 MG, EVERY 12 HOURS
     Dates: start: 20170626, end: 20170709
  12. ENOXAPARIN [Concomitant]
     Active Substance: ENOXAPARIN
     Dosage: 40 MG, 1X/DAY
     Dates: start: 20170615, end: 20170712
  13. GABAPENTIN. [Concomitant]
     Active Substance: GABAPENTIN
     Dosage: 300 MG, 8/8H

REACTIONS (2)
  - Thrombocytopenia [Unknown]
  - Acute kidney injury [Unknown]

NARRATIVE: CASE EVENT DATE: 20170713
